FAERS Safety Report 19661078 (Version 1)
Quarter: 2021Q3

REPORT INFORMATION
  Report Type: Spontaneous
  Country: US (occurrence: US)
  Receive Date: 20210805
  Receipt Date: 20210805
  Transmission Date: 20211014
  Serious: Yes (Hospitalization, Disabling)
  Sender: FDA-Public Use
  Company Number: None

PATIENT
  Age: 65 Year
  Sex: Female

DRUGS (2)
  1. TACROLIMUS 0.5MG [Suspect]
     Active Substance: TACROLIMUS
     Route: 048
     Dates: start: 202001
  2. PREDNISONE 5MG [Suspect]
     Active Substance: PREDNISONE
     Route: 048
     Dates: start: 202001

REACTIONS (2)
  - Oxygen saturation decreased [None]
  - Urinary tract infection [None]

NARRATIVE: CASE EVENT DATE: 20210608
